FAERS Safety Report 5806781-4 (Version None)
Quarter: 2008Q3

REPORT INFORMATION
  Report Type: 
  Country: None (occurrence: None)
  Receive Date: 20080708
  Receipt Date: 20080623
  Transmission Date: 20090109
  Serious: Yes (Hospitalization)
  Sender: FDA-Public Use
  Company Number: 2008001493

PATIENT
  Age: 68 Year
  Sex: Male
  Weight: 88 kg

DRUGS (12)
  1. ERLOTINIB                (ERLOTINIB) [Suspect]
     Indication: NON-SMALL CELL LUNG CANCER
     Dosage: 150 M, 1 IN 1 D, ORAL
     Route: 048
     Dates: start: 20080226
  2. PEMETREXED              (PEMETREXED) (INJECTION) [Suspect]
     Dosage: 500 MG/M2, 1 IN 3 WK, INTRAVENOUS
     Route: 042
     Dates: start: 20080226
  3. RITUXIMAB           (RITUXIMAB) (SOLUTION) [Suspect]
     Dosage: INTRAVENOUS
     Route: 042
  4. PANTOPRAZOLE SODIUM [Concomitant]
  5. GLIMEPIRIDE [Concomitant]
  6. METFORMIN HCL [Concomitant]
  7. METOPROLOL TARTRATE [Concomitant]
  8. HYDROCHLOROTHIAZIDE [Concomitant]
  9. ENOXAPARIN SODIUM [Concomitant]
  10. FOLIC ACID [Concomitant]
  11. VITAMIN B12 [Concomitant]
  12. DEXAMETHASONE TAB [Concomitant]

REACTIONS (2)
  - GENERAL PHYSICAL CONDITION ABNORMAL [None]
  - PANCYTOPENIA [None]
